FAERS Safety Report 10024292 (Version 2)
Quarter: 2014Q2

REPORT INFORMATION
  Report Type: Spontaneous
  Country: JP (occurrence: JP)
  Receive Date: 20140320
  Receipt Date: 20140414
  Transmission Date: 20141212
  Serious: Yes (Other)
  Sender: FDA-Public Use
  Company Number: JP-PFIZER INC-2014076862

PATIENT
  Age: 62 Year
  Sex: Female

DRUGS (6)
  1. GABAPEN [Suspect]
     Dosage: 400 MG, 1X/DAY
     Route: 048
     Dates: start: 2008
  2. PAXIL [Concomitant]
     Route: 048
  3. VASOLAN [Concomitant]
  4. TRYPTANOL [Concomitant]
     Route: 048
  5. MEVALOTIN [Concomitant]
     Route: 048
  6. INDERAL [Concomitant]

REACTIONS (2)
  - Hallucination [Unknown]
  - Abnormal behaviour [Unknown]
